FAERS Safety Report 7992387-8 (Version None)
Quarter: 2011Q4

REPORT INFORMATION
  Report Type: 
  Country: None (occurrence: None)
  Receive Date: 20111219
  Receipt Date: 20110328
  Transmission Date: 20120403
  Serious: No
  Sender: FDA-Public Use
  Company Number: US-ASTRAZENECA-2009SE33869

PATIENT
  Age: 53 Year
  Sex: Female

DRUGS (2)
  1. CRESTOR [Suspect]
     Route: 048
     Dates: end: 20090101
  2. NEXIUM [Suspect]
     Route: 048

REACTIONS (3)
  - DIZZINESS [None]
  - CHEST PAIN [None]
  - DRUG DOSE OMISSION [None]
